FAERS Safety Report 9910185 (Version 2)
Quarter: 2014Q1

REPORT INFORMATION
  Report Type: Spontaneous
  Country: US (occurrence: None)
  Receive Date: 20140212
  Receipt Date: 20140224
  Transmission Date: 20141002
  Serious: Yes (Death)
  Sender: FDA-Public Use
  Company Number: FK201400375

PATIENT
  Age: 33 Year
  Sex: Male

DRUGS (3)
  1. PROPOFOL [Suspect]
     Indication: PRODUCT USED FOR UNKNOWN INDICATION
     Dosage: UNKNOWN
  2. EPINEPHRINE [Suspect]
     Indication: PRODUCT USED FOR UNKNOWN INDICATION
  3. HEROIN (DIAMORPHINE) (DIAMORPHINE) [Suspect]
     Indication: PRODUCT USED FOR UNKNOWN INDICATION

REACTIONS (1)
  - Overdose [None]
